FAERS Safety Report 5309729-4 (Version None)
Quarter: 2007Q2

REPORT INFORMATION
  Report Type: 
  Country: None (occurrence: None)
  Receive Date: 20070427
  Receipt Date: 20070105
  Transmission Date: 20071010
  Serious: No
  Sender: FDA-Public Use
  Company Number: US-GLAXOSMITHKLINE-A0634485A

PATIENT

DRUGS (1)
  1. ZOFRAN [Suspect]
     Indication: PROPHYLAXIS
     Route: 065

REACTIONS (2)
  - DRUG INEFFECTIVE [None]
  - NAUSEA [None]
